FAERS Safety Report 8197892-X (Version None)
Quarter: 2012Q1

REPORT INFORMATION
  Report Type: 
  Country: None (occurrence: None)
  Receive Date: 20120227
  Receipt Date: 20111115
  Transmission Date: 20120608
  Serious: No
  Sender: FDA-Public Use
  Company Number: 336654

PATIENT
  Age: 67 Year
  Sex: Male

DRUGS (2)
  1. VICTOZA [Suspect]
     Dosage: 1.8 MG QD, SUBCUTANEOUS
     Route: 058
  2. VICTOZA [Suspect]
     Indication: TYPE 2 DIABETES MELLITUS
     Dosage: 1.2 MG, SUBCUTANEOUS
     Route: 058
     Dates: start: 20110401

REACTIONS (3)
  - WEIGHT DECREASED [None]
  - DECREASED APPETITE [None]
  - BLOOD GLUCOSE INCREASED [None]
